FAERS Safety Report 5580286-0 (Version None)
Quarter: 2008Q1

REPORT INFORMATION
  Report Type: 
  Country: None (occurrence: None)
  Receive Date: 20080103
  Receipt Date: 20071231
  Transmission Date: 20080703
  Serious: Yes (Life-Threatening, Hospitalization)
  Sender: FDA-Public Use
  Company Number: B0501372A

PATIENT
  Age: 48 Year
  Sex: Female

DRUGS (1)
  1. CLAMOXYL [Suspect]
     Indication: DENTAL CARE
     Route: 048

REACTIONS (2)
  - ANAPHYLACTIC SHOCK [None]
  - LOSS OF CONSCIOUSNESS [None]
